FAERS Safety Report 10519588 (Version 1)
Quarter: 2014Q4

REPORT INFORMATION
  Report Type: Spontaneous
  Country: IT (occurrence: IT)
  Receive Date: 20141015
  Receipt Date: 20141015
  Transmission Date: 20150528
  Serious: Yes (Hospitalization)
  Sender: FDA-Public Use
  Company Number: IT-TEVA-514668ISR

PATIENT
  Age: 64 Year
  Sex: Male

DRUGS (7)
  1. SERENASE [Concomitant]
     Active Substance: HALOPERIDOL
  2. LEVOFOLENE [Concomitant]
     Active Substance: LEVOLEUCOVORIN CALCIUM
     Dosage: FORM OF ADMIN: POWDER FOR SOLUTION FOR INFUSION
     Route: 042
  3. OXALIPLATINO MYLAN GENERICS [Suspect]
     Active Substance: OXALIPLATIN
     Indication: RECTAL CANCER
     Dosage: FORM OF ADMIN: POWDER FOR SOLUTION FOR INFUSION
     Route: 042
     Dates: start: 20140430, end: 20140514
  4. TIKLID 250 MG [Concomitant]
     Active Substance: TICLOPIDINE HYDROCHLORIDE
  5. FLUOROURACILE TEVA [Suspect]
     Active Substance: FLUOROURACIL
     Indication: RECTAL CANCER
     Route: 042
     Dates: start: 20140430, end: 20140514
  6. ZYLORIC 300 MG [Concomitant]
  7. LEXOTAN [Concomitant]
     Active Substance: BROMAZEPAM

REACTIONS (1)
  - Febrile neutropenia [Recovered/Resolved]

NARRATIVE: CASE EVENT DATE: 20140515
